FAERS Safety Report 6150900-X (Version None)
Quarter: 2009Q2

REPORT INFORMATION
  Report Type: 
  Country: None (occurrence: None)
  Receive Date: 20090408
  Receipt Date: 20090318
  Transmission Date: 20091009
  Serious: Yes (Death)
  Sender: FDA-Public Use
  Company Number: AE-2009-040

PATIENT
  Age: 67 Year
  Sex: Female

DRUGS (15)
  1. FAZACLO ODT [Suspect]
     Indication: AGITATION
     Dosage: 100MG QAM, 450MG QHS PO
     Route: 048
     Dates: start: 20080401, end: 20090311
  2. FAZACLO ODT [Suspect]
     Indication: SCHIZOPHRENIA
     Dosage: 100MG QAM, 450MG QHS PO
     Route: 048
     Dates: start: 20080401, end: 20090311
  3. DARVOCET [Concomitant]
  4. TYLENOL [Concomitant]
  5. SPIRIVA [Concomitant]
  6. SEREVENT [Concomitant]
  7. QVAR 40 [Concomitant]
  8. COMBIVENT [Concomitant]
  9. PROVIGIL [Concomitant]
  10. REMERON [Concomitant]
  11. DEPAKOTE [Concomitant]
  12. ABILIFY [Concomitant]
  13. RISPERDAL CONSTA [Concomitant]
  14. .. [Concomitant]
  15. ATIVAN [Concomitant]

REACTIONS (1)
  - DEATH [None]
